FAERS Safety Report 23049340 (Version 1)
Quarter: 2023Q4

REPORT INFORMATION
  Report Type: Spontaneous
  Country: US (occurrence: None)
  Receive Date: 20231006
  Receipt Date: 20231006
  Transmission Date: 20240110
  Serious: Yes (Hospitalization)
  Sender: FDA-Public Use
  Company Number: None

PATIENT
  Age: 54 Year
  Sex: Female

DRUGS (1)
  1. AMBRISENTAN [Suspect]
     Active Substance: AMBRISENTAN
     Indication: Pulmonary hypertension
     Dosage: OTHER FREQUENCY : DAILY AT BEDTIME;?
     Route: 048
     Dates: start: 20230518

REACTIONS (4)
  - Respiratory syncytial virus infection [None]
  - Therapy interrupted [None]
  - Product distribution issue [None]
  - Insurance issue [None]

NARRATIVE: CASE EVENT DATE: 20230911
